FAERS Safety Report 9519045 (Version 1)
Quarter: 2013Q3

REPORT INFORMATION
  Report Type: Spontaneous
  Country: US (occurrence: None)
  Receive Date: 20130911
  Receipt Date: 20130911
  Transmission Date: 20140515
  Serious: Yes (Disabling)
  Sender: FDA-Public Use
  Company Number: None

PATIENT
  Age: 48 Year
  Sex: Female

DRUGS (1)
  1. MONTELUKAST [Suspect]
     Indication: MULTIPLE ALLERGIES
     Dates: start: 20130106, end: 20130127

REACTIONS (4)
  - Somnolence [None]
  - Product substitution issue [None]
  - Therapeutic response unexpected with drug substitution [None]
  - Therapeutic response decreased [None]
